FAERS Safety Report 13223642 (Version 1)
Quarter: 2017Q1

REPORT INFORMATION
  Report Type: Other
  Country: US (occurrence: US)
  Receive Date: 20170212
  Receipt Date: 20170212
  Transmission Date: 20170428
  Serious: No
  Sender: FDA-Public Use
  Company Number: US-ACORDA-ACO_125925_2016

PATIENT
  Sex: Female

DRUGS (4)
  1. AMPYRA [Suspect]
     Active Substance: DALFAMPRIDINE
     Dosage: 10 MG, BID
     Route: 048
  2. AUBAGIO [Suspect]
     Active Substance: TERIFLUNOMIDE
     Indication: MULTIPLE SCLEROSIS
  3. AMPYRA [Suspect]
     Active Substance: DALFAMPRIDINE
     Indication: MULTIPLE SCLEROSIS
     Dosage: 10 MG, BID
     Route: 048
     Dates: start: 2014
  4. AMPYRA [Suspect]
     Active Substance: DALFAMPRIDINE
     Dosage: 10 MG, QD
     Route: 048

REACTIONS (14)
  - Headache [Not Recovered/Not Resolved]
  - Stress [Unknown]
  - Pain [Unknown]
  - Therapy cessation [Unknown]
  - Emotional disorder [Unknown]
  - Blood pressure increased [Unknown]
  - Visual impairment [Unknown]
  - Speech disorder [Unknown]
  - Nausea [Unknown]
  - Chest pain [Unknown]
  - Dizziness [Unknown]
  - Therapeutic response unexpected [Unknown]
  - Feeling abnormal [Unknown]
  - Limb discomfort [Unknown]
